FAERS Safety Report 16614208 (Version 2)
Quarter: 2019Q3

REPORT INFORMATION
  Report Type: Report from Study
  Country: DE (occurrence: DE)
  Receive Date: 20190723
  Receipt Date: 20190808
  Transmission Date: 20191004
  Serious: Yes (Hospitalization, Other)
  Sender: FDA-Public Use
  Company Number: DE-ALIMERA SCIENCES INC.-DE-IL-2019-004432

PATIENT
  Age: 42 Year
  Sex: Male

DRUGS (3)
  1. VELEMETIA [Concomitant]
     Indication: TYPE 2 DIABETES MELLITUS
     Dosage: 100/2000 DAILY
     Dates: start: 201505
  2. LANTUS [Concomitant]
     Active Substance: INSULIN GLARGINE
     Indication: TYPE 2 DIABETES MELLITUS
     Dosage: UNK
     Dates: start: 201505
  3. ILUVIEN [Suspect]
     Active Substance: FLUOCINOLONE ACETONIDE
     Indication: DIABETIC RETINAL OEDEMA
     Dosage: 0.25 ?G, QD-LEFT EYE
     Route: 031
     Dates: start: 20170323

REACTIONS (2)
  - Vitreous haemorrhage [Recovered/Resolved]
  - Vitrectomy [Recovered/Resolved]

NARRATIVE: CASE EVENT DATE: 20190503
